FAERS Safety Report 7581447-1 (Version None)
Quarter: 2011Q2

REPORT INFORMATION
  Report Type: 
  Country: None (occurrence: None)
  Receive Date: 20110629
  Receipt Date: 20110616
  Transmission Date: 20111010
  Serious: Yes (Hospitalization, Other)
  Sender: FDA-Public Use
  Company Number: PHHY2011JP39261

PATIENT
  Sex: Male

DRUGS (4)
  1. PENTAZOCINE LACTATE [Suspect]
     Indication: ANALGESIC THERAPY
     Dosage: MATERNAL DOSE: 15 MG
     Route: 063
     Dates: start: 20110427, end: 20110428
  2. FLURBIPROFEN [Suspect]
     Indication: ANALGESIC THERAPY
     Dosage: MATERNAL DOSE: 50 MG
     Route: 063
     Dates: start: 20110427, end: 20110427
  3. VOLTAREN [Suspect]
     Indication: ANALGESIC THERAPY
     Dosage: MATERNAL DOSE: 50 MG
     Route: 063
     Dates: start: 20110428, end: 20110501
  4. LOXONIN [Suspect]
     Indication: ANALGESIC THERAPY
     Dosage: MATERNAL DOSE: 180 MG
     Route: 063
     Dates: start: 20110428, end: 20110503

REACTIONS (5)
  - DRUG EXPOSURE VIA BREAST MILK [None]
  - CYANOSIS NEONATAL [None]
  - APNOEA [None]
  - OXYGEN SATURATION DECREASED [None]
  - HYPOTHERMIA [None]
